FAERS Safety Report 22134752 (Version 1)
Quarter: 2023Q1

REPORT INFORMATION
  Report Type: Spontaneous
  Country: US (occurrence: None)
  Receive Date: 20230322
  Receipt Date: 20230322
  Transmission Date: 20230418
  Serious: No
  Sender: FDA-Public Use
  Company Number: None

PATIENT
  Age: 70 Year
  Sex: Female
  Weight: 90.72 kg

DRUGS (18)
  1. SUNITINIB MALATE [Suspect]
     Active Substance: SUNITINIB MALATE
     Indication: Renal cancer
     Dosage: FREQUENCY : DAILY;?
     Route: 048
  2. ALLERGY RELIEF [Concomitant]
  3. AZO BLADDER CONTROL/GO LESS [Concomitant]
  4. BACLOFEN [Concomitant]
     Active Substance: BACLOFEN
  5. BIOTIN [Concomitant]
     Active Substance: BIOTIN
  6. BUPROPION [Concomitant]
     Active Substance: BUPROPION
  7. CRANBERRY [Concomitant]
     Active Substance: CRANBERRY
  8. EFFEXOR XR [Concomitant]
     Active Substance: VENLAFAXINE HYDROCHLORIDE
  9. GINKGO [Concomitant]
     Active Substance: GINKGO
  10. NORCO [Concomitant]
     Active Substance: ACETAMINOPHEN\HYDROCODONE BITARTRATE
  11. HYDROXYZINE [Concomitant]
     Active Substance: HYDROXYZINE HYDROCHLORIDE
  12. LANSOPRAZOLE [Concomitant]
     Active Substance: LANSOPRAZOLE
  13. MAGNESIUM [Concomitant]
     Active Substance: MAGNESIUM
  14. MV-ONE [Concomitant]
  15. NIACIN [Concomitant]
     Active Substance: NIACIN
  16. POTASSIUM CHLORIDE [Concomitant]
     Active Substance: POTASSIUM CHLORIDE
  17. VITAMIN D3 [Concomitant]
     Active Substance: CHOLECALCIFEROL
  18. WARFARIN [Concomitant]
     Active Substance: WARFARIN

REACTIONS (2)
  - Renal cancer [None]
  - Disease progression [None]
